FAERS Safety Report 5753262-2 (Version None)
Quarter: 2008Q2

REPORT INFORMATION
  Report Type: 
  Country: None (occurrence: None)
  Receive Date: 20080530
  Receipt Date: 20070824
  Transmission Date: 20081010
  Serious: No
  Sender: FDA-Public Use
  Company Number: A0676133A

PATIENT
  Age: 66 Year
  Sex: Female

DRUGS (4)
  1. VENTOLIN [Suspect]
     Indication: ASTHMA
     Dosage: 2SPR AS REQUIRED
     Route: 055
     Dates: start: 20070814, end: 20070823
  2. SYNTHROID [Concomitant]
  3. PEPCID [Concomitant]
  4. VALIUM [Concomitant]

REACTIONS (6)
  - ANXIETY [None]
  - CHEST DISCOMFORT [None]
  - CHEST PAIN [None]
  - DRUG INEFFECTIVE [None]
  - DYSPNOEA [None]
  - PHARMACEUTICAL PRODUCT COMPLAINT [None]
